FAERS Safety Report 5279949-6 (Version None)
Quarter: 2007Q1

REPORT INFORMATION
  Report Type: 
  Country: None (occurrence: None)
  Receive Date: 20070327
  Receipt Date: 20070327
  Transmission Date: 20070707
  Serious: Yes (Other)
  Sender: FDA-Public Use
  Company Number: None

PATIENT
  Sex: Male
  Weight: 116.9 kg

DRUGS (7)
  1. GEMCITABINE [Suspect]
     Indication: SARCOMA
     Dosage: 2400 MG D1, D8 IV
     Route: 042
     Dates: start: 20070227, end: 20070306
  2. CAPECITABINE [Suspect]
     Indication: SARCOMA
     Dosage: 1150 MG BID D1-14 PO
     Route: 048
     Dates: start: 20070227, end: 20070312
  3. LOVENOX [Concomitant]
  4. NEXIUM [Concomitant]
  5. TYELNOL [Concomitant]
  6. RED BLOOD CELLS [Concomitant]
  7. PLATELETS [Concomitant]

REACTIONS (3)
  - PETECHIAE [None]
  - PLATELET COUNT ABNORMAL [None]
  - PYREXIA [None]
